FAERS Safety Report 8457539-1 (Version None)
Quarter: 2012Q2

REPORT INFORMATION
  Report Type: 
  Country: None (occurrence: None)
  Receive Date: 20120622
  Receipt Date: 20120613
  Transmission Date: 20120825
  Serious: Yes (Death, Hospitalization)
  Sender: FDA-Public Use
  Company Number: US-BIOGENIDEC-2012BI021351

PATIENT
  Sex: Male

DRUGS (2)
  1. TYSABRI [Suspect]
     Indication: MULTIPLE SCLEROSIS
     Route: 042
     Dates: start: 20061127, end: 20090721
  2. TYSABRI [Suspect]
     Route: 042
     Dates: start: 20101108, end: 20120430

REACTIONS (3)
  - LEG AMPUTATION [None]
  - PERIPHERAL VASCULAR DISORDER [None]
  - PROCEDURAL COMPLICATION [None]
